FAERS Safety Report 5156481-1 (Version None)
Quarter: 2006Q4

REPORT INFORMATION
  Report Type: 
  Country: None (occurrence: None)
  Receive Date: 20061122
  Receipt Date: 20061116
  Transmission Date: 20070319
  Serious: Yes (Hospitalization)
  Sender: FDA-Public Use
  Company Number: DE-BRISTOL-MYERS SQUIBB COMPANY-13584644

PATIENT
  Age: 41 Year
  Sex: Female

DRUGS (5)
  1. ENDOXAN [Suspect]
     Indication: BREAST CANCER
     Dates: start: 20060410, end: 20060410
  2. EPIRUBICIN [Concomitant]
     Indication: BREAST CANCER
     Dates: start: 20060410, end: 20060410
  3. FLUOROURACIL [Concomitant]
     Indication: BREAST CANCER
     Dates: start: 20060410, end: 20060410
  4. SODIUM CHLORIDE [Concomitant]
  5. GLUCOSE [Concomitant]

REACTIONS (1)
  - THROMBOPHLEBITIS [None]
